FAERS Safety Report 4939587-9 (Version None)
Quarter: 2006Q1

REPORT INFORMATION
  Report Type: 
  Country: None (occurrence: None)
  Receive Date: 20060310
  Receipt Date: 20060228
  Transmission Date: 20060701
  Serious: Yes (Hospitalization)
  Sender: FDA-Public Use
  Company Number: US-JNJFOC-20060300911

PATIENT
  Age: 59 Year
  Sex: Male

DRUGS (2)
  1. ACETAMINOPHEN [Suspect]
     Dosage: 100 TABLETS OVER A 4 DAY PERIOD
  2. ACETAMINOPHEN [Suspect]
     Indication: DRUG USE FOR UNKNOWN INDICATION
     Dosage: TOOK UP TO 10 (300 MG) TABLETS A DAY FOR YEARS

REACTIONS (2)
  - HEPATIC FAILURE [None]
  - OVERDOSE [None]
